FAERS Safety Report 7811545-6 (Version None)
Quarter: 2011Q4

REPORT INFORMATION
  Report Type: 
  Country: None (occurrence: None)
  Receive Date: 20111013
  Receipt Date: 20111011
  Transmission Date: 20120403
  Serious: Yes (Death)
  Sender: FDA-Public Use
  Company Number: MX-SANOFI-AVENTIS-2011SA066788

PATIENT
  Age: 75 Year
  Sex: Female
  Weight: 55 kg

DRUGS (5)
  1. ENOXAPARIN SODIUM [Suspect]
     Route: 058
     Dates: start: 20101201, end: 20110201
  2. ENOXAPARIN SODIUM [Suspect]
     Indication: DEEP VEIN THROMBOSIS
     Route: 058
     Dates: start: 20110201, end: 20110812
  3. OTHER CHEMOTHERAPEUTICS [Concomitant]
     Dates: start: 20070101
  4. ENOXAPARIN SODIUM [Suspect]
     Indication: THROMBOSIS PROPHYLAXIS
     Route: 058
     Dates: start: 20110201, end: 20110812
  5. ENOXAPARIN SODIUM [Suspect]
     Route: 058
     Dates: start: 20101201, end: 20110201

REACTIONS (1)
  - INFECTIOUS PERITONITIS [None]
